FAERS Safety Report 4849042-2 (Version None)
Quarter: 2005Q4

REPORT INFORMATION
  Report Type: 
  Country: None (occurrence: None)
  Receive Date: 20051209
  Receipt Date: 20051130
  Transmission Date: 20060501
  Serious: Yes (Hospitalization)
  Sender: FDA-Public Use
  Company Number: US-JNJFOC-20051200442

PATIENT
  Sex: Male

DRUGS (9)
  1. REMICADE [Suspect]
     Route: 042
  2. REMICADE [Suspect]
     Route: 042
  3. ATENOLOL [Concomitant]
  4. DIOVAN [Concomitant]
  5. PLAVIX [Concomitant]
  6. CRESTOR [Concomitant]
  7. NAPROXEN [Concomitant]
  8. PREDNISONE [Concomitant]
  9. PHOSIMEX [Concomitant]

REACTIONS (3)
  - CHILLS [None]
  - PYREXIA [None]
  - WHITE BLOOD CELL COUNT INCREASED [None]
